FAERS Safety Report 12916210 (Version 1)
Quarter: 2016Q4

REPORT INFORMATION
  Report Type: Spontaneous
  Country: US (occurrence: US)
  Receive Date: 20161107
  Receipt Date: 20161107
  Transmission Date: 20170207
  Serious: Yes (Life-Threatening, Hospitalization, Disabling, Other)
  Sender: FDA-Public Use
  Company Number: None

PATIENT
  Age: 50 Year
  Sex: Female
  Weight: 70 kg

DRUGS (7)
  1. KEPPRA [Concomitant]
     Active Substance: LEVETIRACETAM
  2. TOPAMAX [Suspect]
     Active Substance: TOPIRAMATE
  3. EXCEDRIN [Concomitant]
     Active Substance: ACETAMINOPHEN\ASPIRIN\CAFFEINE
  4. ZONISAMIDE. [Suspect]
     Active Substance: ZONISAMIDE
  5. LAMOTRIGINE. [Concomitant]
     Active Substance: LAMOTRIGINE
  6. IBUPROFEN. [Concomitant]
     Active Substance: IBUPROFEN
  7. DURAGESIC [Concomitant]
     Active Substance: FENTANYL

REACTIONS (7)
  - Personality change [None]
  - Judgement impaired [None]
  - Psychotic disorder [None]
  - Insomnia [None]
  - Cognitive disorder [None]
  - Suicidal ideation [None]
  - Weight decreased [None]

NARRATIVE: CASE EVENT DATE: 2012
